FAERS Safety Report 9436515 (Version 1)
Quarter: 2013Q3

REPORT INFORMATION
  Report Type: Spontaneous
  Country: US (occurrence: US)
  Receive Date: 20130802
  Receipt Date: 20130802
  Transmission Date: 20140515
  Serious: No
  Sender: FDA-Public Use
  Company Number: US-OPTIMER-20130026

PATIENT
  Age: 89 Year
  Sex: Male
  Weight: 84.81 kg

DRUGS (1)
  1. DIFICID [Suspect]
     Indication: CLOSTRIDIUM DIFFICILE COLITIS
     Dosage: UNK
     Dates: start: 20121107, end: 20121115

REACTIONS (3)
  - Diarrhoea [Recovered/Resolved]
  - Abdominal pain [Unknown]
  - Drug ineffective [Recovered/Resolved]
